FAERS Safety Report 11154851 (Version 1)
Quarter: 2015Q2

REPORT INFORMATION
  Report Type: Spontaneous
  Country: US (occurrence: None)
  Receive Date: 20150601
  Receipt Date: 20150601
  Transmission Date: 20150821
  Serious: Yes (Other)
  Sender: FDA-Public Use
  Company Number: None

PATIENT
  Age: 34 Year
  Sex: Female
  Weight: 57.61 kg

DRUGS (3)
  1. ARIPRAZOLE [Suspect]
     Active Substance: ARIPIPRAZOLE
     Indication: NERVOUSNESS
     Route: 048
     Dates: start: 20150519, end: 20150522
  2. ARIPRAZOLE [Suspect]
     Active Substance: ARIPIPRAZOLE
     Indication: OBSESSIVE-COMPULSIVE DISORDER
     Route: 048
     Dates: start: 20150519, end: 20150522
  3. ARIPRAZOLE [Suspect]
     Active Substance: ARIPIPRAZOLE
     Indication: PRADER-WILLI SYNDROME
     Route: 048
     Dates: start: 20150519, end: 20150522

REACTIONS (7)
  - Product substitution issue [None]
  - Abnormal behaviour [None]
  - Posture abnormal [None]
  - Obsessive-compulsive disorder [None]
  - Pruritus [None]
  - Condition aggravated [None]
  - Insomnia [None]

NARRATIVE: CASE EVENT DATE: 20150519
